FAERS Safety Report 19294671 (Version 1)
Quarter: 2021Q2

REPORT INFORMATION
  Report Type: Report from Study
  Country: GB (occurrence: GB)
  Receive Date: 20210524
  Receipt Date: 20210524
  Transmission Date: 20210717
  Serious: Yes (Other)
  Sender: FDA-Public Use
  Company Number: NVSC2021GB110365

PATIENT
  Sex: Female

DRUGS (1)
  1. HYRIMOZ [Suspect]
     Active Substance: ADALIMUMAB-ADAZ
     Indication: PSORIATIC ARTHROPATHY
     Dosage: 40 MG, BIW (FORTNIGHTLY)
     Route: 058
     Dates: start: 20200128

REACTIONS (3)
  - Abortion spontaneous [Unknown]
  - Product availability issue [Unknown]
  - Maternal exposure during pregnancy [Unknown]
